FAERS Safety Report 9845480 (Version 1)
Quarter: 2014Q1

REPORT INFORMATION
  Report Type: Spontaneous
  Country: US (occurrence: None)
  Receive Date: 20140123
  Receipt Date: 20140123
  Transmission Date: 20141002
  Serious: Yes (Hospitalization)
  Sender: FDA-Public Use
  Company Number: DE-SEPTODONT-201301660

PATIENT
  Age: 66 Year
  Sex: Female

DRUGS (3)
  1. SEPTANEST [Suspect]
     Indication: LOCAL ANAESTHESIA
     Dosage: 1 MI ONCE A DAY DENTAL
     Route: 004
     Dates: start: 20131209, end: 20131209
  2. GODAMED 500 (ACETYLSALICYILIC ACID; GLYCINE) [Concomitant]
  3. PANTOPRAZOLE (PANTOPRAZOLE) [Concomitant]

REACTIONS (4)
  - Hypertension [None]
  - Tachycardia [None]
  - Vertigo [None]
  - Feeling hot [None]
